FAERS Safety Report 8774286 (Version 3)
Quarter: 2013Q1

REPORT INFORMATION
  Report Type: Spontaneous
  Country: DK (occurrence: DK)
  Receive Date: 20120907
  Receipt Date: 20130208
  Transmission Date: 20140127
  Serious: Yes (Other)
  Sender: FDA-Public Use
  Company Number: DK-BAYER-2012-091004

PATIENT
  Age: 51 Year
  Sex: Female

DRUGS (1)
  1. MIRENA [Suspect]
     Indication: MENORRHAGIA
     Dosage: 20 MCG/24HR, CONT
     Dates: start: 20120704, end: 20120707

REACTIONS (5)
  - Abdominal infection [Recovered/Resolved]
  - Lymphoma [None]
  - Pyrexia [Recovered/Resolved]
  - Vaginal haemorrhage [None]
  - Abdominal pain [Recovered/Resolved]
